FAERS Safety Report 10024685 (Version 5)
Quarter: 2014Q3

REPORT INFORMATION
  Report Type: Report from Study
  Country: AU (occurrence: AU)
  Receive Date: 20140320
  Receipt Date: 20140912
  Transmission Date: 20150326
  Serious: Yes (Hospitalization)
  Sender: FDA-Public Use
  Company Number: AU-B.I. PHARMACEUTICALS,INC./RIDGEFIELD-2013-BI-09481BI

PATIENT
  Age: 53 Year
  Sex: Female
  Weight: 55 kg

DRUGS (7)
  1. CALTRATE WITH VITAMIN D [Concomitant]
     Active Substance: CALCIUM CARBONATE\VITAMIN D
     Indication: ROUTINE HEALTH MAINTENANCE
     Dosage: 1400 U
     Route: 048
     Dates: start: 20110621
  2. DEXAMETHASONE. [Concomitant]
     Active Substance: DEXAMETHASONE
     Indication: NAUSEA
     Dosage: 4 MG
     Route: 042
     Dates: start: 20130206
  3. BIBW 2992 [Suspect]
     Active Substance: AFATINIB
     Indication: BREAST CANCER METASTATIC
     Dosage: 40 MG
     Route: 048
     Dates: start: 20130227, end: 20130402
  4. VINORELBINE [Suspect]
     Active Substance: VINORELBINE\VINORELBINE TARTRATE
     Indication: BREAST CANCER METASTATIC
     Dosage: 42 MG
     Route: 042
     Dates: start: 20130226, end: 20130319
  5. LOPERAMIDE [Concomitant]
     Active Substance: LOPERAMIDE
     Indication: DIARRHOEA
     Dosage: 20 MG
     Route: 048
     Dates: start: 20130226, end: 20130407
  6. ZOFRAN [Concomitant]
     Active Substance: ONDANSETRON HYDROCHLORIDE
     Indication: NAUSEA
     Dosage: 8 MG
     Route: 042
     Dates: start: 20130226
  7. TEGRETOL [Concomitant]
     Active Substance: CARBAMAZEPINE
     Indication: EPILEPSY
     Dosage: 600 MG
     Route: 048
     Dates: start: 1990

REACTIONS (10)
  - Blood creatinine increased [Recovered/Resolved]
  - Diarrhoea [Recovered/Resolved]
  - Vomiting [Recovered/Resolved]
  - Hypokalaemia [Recovered/Resolved]
  - Small intestinal obstruction [Recovered/Resolved]
  - Dehydration [Recovered/Resolved]
  - Vomiting [Recovered/Resolved]
  - Nausea [Recovered/Resolved]
  - Dehydration [Recovered/Resolved]
  - Nausea [Recovered/Resolved]

NARRATIVE: CASE EVENT DATE: 20130326
